FAERS Safety Report 5400809-1 (Version None)
Quarter: 2007Q3

REPORT INFORMATION
  Report Type: 
  Country: None (occurrence: None)
  Receive Date: 20070730
  Receipt Date: 20070717
  Transmission Date: 20080115
  Serious: Yes (Hospitalization)
  Sender: FDA-Public Use
  Company Number: US-SHR-US-2007-026711

PATIENT
  Age: 41 Year
  Sex: Female

DRUGS (4)
  1. BETASERON [Suspect]
     Dosage: 8 MIU, EVERY 2D
     Route: 058
     Dates: start: 20061004
  2. LISINOPRIL [Concomitant]
     Dosage: UNK, 1X/DAY
  3. METOPROLOL SUCCINATE [Concomitant]
     Dosage: UNK, 2X/DAY
  4. ASPIRIN [Concomitant]

REACTIONS (8)
  - BLOOD PRESSURE FLUCTUATION [None]
  - BURNING SENSATION [None]
  - GINGIVAL INFECTION [None]
  - GINGIVAL RECESSION [None]
  - HEART RATE INCREASED [None]
  - MUSCULAR WEAKNESS [None]
  - MYOCARDIAL INFARCTION [None]
  - PYREXIA [None]
